FAERS Safety Report 18025251 (Version 2)
Quarter: 2020Q3

REPORT INFORMATION
  Report Type: Spontaneous
  Country: GB (occurrence: GB)
  Receive Date: 20200715
  Receipt Date: 20200727
  Transmission Date: 20201103
  Serious: Yes (Death, Other)
  Sender: FDA-Public Use
  Company Number: GB-PFIZER INC-2020269362

PATIENT
  Age: 51 Year
  Sex: Female
  Weight: 52 kg

DRUGS (10)
  1. LAXIDO [Concomitant]
     Active Substance: POLYETHYLENE GLYCOL 3350\POTASSIUM CHLORIDE\SODIUM BICARBONATE\SODIUM CHLORIDE
     Dosage: UNK
  2. CASSIA SENNA [Concomitant]
     Active Substance: HERBALS\SENNOSIDES
     Dosage: UNK
  3. GOSERELIN ACETATE [Concomitant]
     Active Substance: GOSERELIN ACETATE
     Dosage: UNK
  4. PALBOCICLIB [Suspect]
     Active Substance: PALBOCICLIB
     Indication: BREAST CANCER METASTATIC
     Dosage: 75 MG, CYCLIC (ONCE DAILY 21 DAYS ON, FOLLOWED BY 7 DAYS BREAK)
     Route: 048
     Dates: start: 20200401, end: 20200422
  5. NICOTINE. [Concomitant]
     Active Substance: NICOTINE
     Dosage: UNK
  6. MORPHINE [Concomitant]
     Active Substance: MORPHINE
     Dosage: UNK
  7. OMEPRAZOLE. [Concomitant]
     Active Substance: OMEPRAZOLE
     Dosage: UNK
  8. SPIRONOLACTONE. [Concomitant]
     Active Substance: SPIRONOLACTONE
     Dosage: UNK
  9. LETROZOLE. [Concomitant]
     Active Substance: LETROZOLE
     Dosage: UNK
  10. DEXAMETHASONE. [Concomitant]
     Active Substance: DEXAMETHASONE
     Dosage: UNK

REACTIONS (3)
  - Liver function test increased [Unknown]
  - Acute hepatic failure [Fatal]
  - Death [Fatal]

NARRATIVE: CASE EVENT DATE: 20200401
